FAERS Safety Report 16270739 (Version 3)
Quarter: 2019Q2

REPORT INFORMATION
  Report Type: Report from Study
  Country: FR (occurrence: FR)
  Receive Date: 20190503
  Receipt Date: 20190627
  Transmission Date: 20190711
  Serious: Yes (Other)
  Sender: FDA-Public Use
  Company Number: FR-ROCHE-2309847

PATIENT
  Age: 71 Year
  Sex: Male
  Weight: 79 kg

DRUGS (17)
  1. PYOSTACINE [Concomitant]
     Active Substance: PRISTINAMYCIN
     Indication: INTERTRIGO
     Route: 065
     Dates: start: 20190312, end: 20190322
  2. CORTANCYL [Concomitant]
     Active Substance: PREDNISONE
     Indication: HEPATITIS
     Route: 065
     Dates: start: 20181114
  3. KAYEXALATE [Concomitant]
     Active Substance: SODIUM POLYSTYRENE SULFONATE
     Indication: BLOOD POTASSIUM INCREASED
     Route: 065
     Dates: start: 20190116
  4. ATEZOLIZUMAB. [Suspect]
     Active Substance: ATEZOLIZUMAB
     Indication: MALIGNANT MELANOMA
     Dosage: MOST RECENT DOSE OF ATEZOLIZUMAB, 264 MG.
     Route: 041
     Dates: start: 20180704
  5. MOVICOL [Concomitant]
     Active Substance: POLYETHYLENE GLYCOL 3350\POTASSIUM CHLORIDE\SODIUM BICARBONATE\SODIUM CHLORIDE
     Indication: CONSTIPATION PROPHYLAXIS
     Route: 065
     Dates: start: 20190212
  6. CURACNE [Concomitant]
     Active Substance: ISOTRETINOIN
     Indication: ACNE
     Route: 065
     Dates: start: 20190130
  7. DERMOVAL [CLOBETASOL PROPIONATE] [Concomitant]
     Indication: ECZEMA
     Route: 061
     Dates: start: 20181030
  8. COBIMETINIB. [Suspect]
     Active Substance: COBIMETINIB
     Indication: MALIGNANT MELANOMA
     Dosage: MOST RECENT DOSE OF COBIMETINIB ON 22/APR/2018, 20 MG.
     Route: 048
     Dates: start: 20180704
  9. DIFFU K [Concomitant]
     Active Substance: POTASSIUM CHLORIDE
     Route: 065
     Dates: start: 20181114
  10. BETAMETHASONE. [Concomitant]
     Active Substance: BETAMETHASONE
     Route: 061
     Dates: start: 20190327
  11. BETAMETHASONE. [Concomitant]
     Active Substance: BETAMETHASONE
     Indication: ROSACEA
     Dosage: DOSE ND UNIT UNKNOWN
     Route: 061
     Dates: start: 20180914
  12. BEPANTHENE [Concomitant]
     Active Substance: DEXPANTHENOL
     Indication: INTERTRIGO
     Route: 065
     Dates: start: 20190322
  13. INNOHEP [Concomitant]
     Active Substance: TINZAPARIN SODIUM
     Indication: VENOUS THROMBOSIS
     Route: 065
     Dates: start: 20190116
  14. ERYTHROMYCIN. [Concomitant]
     Active Substance: ERYTHROMYCIN
     Indication: ACNE
     Route: 065
     Dates: start: 20190409
  15. PYOSTACINE [Concomitant]
     Active Substance: PRISTINAMYCIN
     Indication: ECZEMA
     Route: 065
     Dates: start: 20181030
  16. LOVENOX [Concomitant]
     Active Substance: ENOXAPARIN SODIUM
     Indication: DEEP VEIN THROMBOSIS
  17. DEXERYL [GLYCEROL;PARAFFIN, LIQUID;WHITE SOFT PARAFFIN] [Concomitant]
     Active Substance: GLYCERIN\MINERAL OIL\PETROLATUM
     Indication: RASH
     Route: 065
     Dates: start: 20190116

REACTIONS (1)
  - Myocardial ischaemia [Recovered/Resolved]

NARRATIVE: CASE EVENT DATE: 20190419
